FAERS Safety Report 18261472 (Version 1)
Quarter: 2020Q3

REPORT INFORMATION
  Report Type: Spontaneous
  Country: US (occurrence: US)
  Receive Date: 20200914
  Receipt Date: 20200914
  Transmission Date: 20201103
  Serious: Yes (Hospitalization, Other)
  Sender: FDA-Public Use
  Company Number: US-TORRENT-00010393

PATIENT
  Age: 56 Year
  Sex: Female

DRUGS (2)
  1. CLOZAPINE. [Concomitant]
     Active Substance: CLOZAPINE
     Indication: SCHIZOPHRENIA
     Dosage: UNKNOWN
  2. PRAMIPEXOLE. [Suspect]
     Active Substance: PRAMIPEXOLE
     Indication: RESTLESS LEGS SYNDROME

REACTIONS (1)
  - Psychotic disorder [Recovered/Resolved]
